FAERS Safety Report 9457367 (Version 1)
Quarter: 2013Q3

REPORT INFORMATION
  Report Type: Report from Study
  Country: IN (occurrence: IN)
  Receive Date: 20130814
  Receipt Date: 20130814
  Transmission Date: 20140515
  Serious: Yes (Death)
  Sender: FDA-Public Use
  Company Number: PHHY2012IN015380

PATIENT
  Age: 40 Year
  Sex: Female

DRUGS (2)
  1. GLIVEC [Suspect]
     Indication: CHRONIC MYELOID LEUKAEMIA
     Dosage: 600 MG UNK
  2. GLIVEC [Suspect]
     Dosage: 800 MG UNK

REACTIONS (2)
  - Death [Fatal]
  - Drug ineffective [Unknown]
